FAERS Safety Report 6278041-1 (Version None)
Quarter: 2009Q3

REPORT INFORMATION
  Report Type: 
  Country: None (occurrence: None)
  Receive Date: 20090722
  Receipt Date: 20090714
  Transmission Date: 20100115
  Serious: Yes (Hospitalization)
  Sender: FDA-Public Use
  Company Number: PHHO2009TW08778

PATIENT
  Sex: Female
  Weight: 67.7 kg

DRUGS (4)
  1. RAD 666 RAD+TAB+CMAS [Suspect]
     Indication: GASTRIC CANCER
     Dosage: 10 MG
     Route: 048
     Dates: start: 20090616, end: 20090617
  2. CISPLATIN [Concomitant]
     Indication: GASTRIC CANCER
     Dosage: 35 MG/M2, QD
     Route: 042
  3. FLUOROURACIL [Concomitant]
     Indication: GASTRIC CANCER
     Dosage: 2000 MG/ML, UNK
     Route: 042
  4. LEUCOVORIN CALCIUM [Concomitant]
     Indication: GASTRIC CANCER
     Dosage: 300 MG/M2, UNK
     Route: 042

REACTIONS (6)
  - ABDOMINAL PAIN [None]
  - ABDOMINAL REBOUND TENDERNESS [None]
  - ABDOMINAL RIGIDITY [None]
  - GASTRIC OPERATION [None]
  - GASTROINTESTINAL PERFORATION [None]
  - PNEUMOPERITONEUM [None]
